FAERS Safety Report 10640482 (Version 2)
Quarter: 2015Q1

REPORT INFORMATION
  Report Type: Spontaneous
  Country: US (occurrence: US)
  Receive Date: 20141209
  Receipt Date: 20150126
  Transmission Date: 20150720
  Serious: Yes (Hospitalization, Other)
  Sender: FDA-Public Use
  Company Number: US-TEVA-508340USA

PATIENT
  Age: 56 Year
  Sex: Male
  Weight: 84.44 kg

DRUGS (10)
  1. CARDURA [Concomitant]
     Active Substance: DOXAZOSIN MESYLATE
     Indication: PROSTATOMEGALY
  2. CLOZAPINE. [Suspect]
     Active Substance: CLOZAPINE
     Indication: SCHIZOPHRENIA, PARANOID TYPE
     Dosage: 400 MILLIGRAM DAILY;
     Route: 065
     Dates: start: 1995, end: 2014
  3. PROTONIX [Concomitant]
     Active Substance: PANTOPRAZOLE SODIUM
     Indication: BARRETT^S OESOPHAGUS
  4. PROCARDIA [Concomitant]
     Active Substance: NIFEDIPINE
     Indication: HYPERTENSION
  5. ALBUTEROL. [Concomitant]
     Active Substance: ALBUTEROL
     Indication: ASTHMA
  6. HALDOL [Concomitant]
     Active Substance: HALOPERIDOL
     Indication: SCHIZOPHRENIA, PARANOID TYPE
  7. ADVAIR HFA [Concomitant]
     Active Substance: FLUTICASONE PROPIONATE\SALMETEROL XINAFOATE
     Indication: BRONCHITIS
     Dosage: DISC 500-50
  8. ALBUTEROL. [Concomitant]
     Active Substance: ALBUTEROL
     Indication: BRONCHITIS
     Dosage: 2.5 MG/3 ML
  9. CARDURA [Concomitant]
     Active Substance: DOXAZOSIN MESYLATE
     Indication: HYPERTENSION
  10. FLOMAX [Concomitant]
     Active Substance: TAMSULOSIN HYDROCHLORIDE
     Indication: PROSTATOMEGALY

REACTIONS (17)
  - Volvulus of small bowel [Recovered/Resolved]
  - Hiatus hernia [Unknown]
  - Polyp [Recovered/Resolved]
  - Faecaloma [Recovered/Resolved]
  - Constipation [Not Recovered/Not Resolved]
  - Oesophageal stenosis [Unknown]
  - Throat tightness [Recovered/Resolved]
  - Barrett^s oesophagus [Not Recovered/Not Resolved]
  - Haematemesis [Unknown]
  - Vomiting [Unknown]
  - Ileus paralytic [Not Recovered/Not Resolved]
  - Pyrexia [Unknown]
  - Abdominal distension [Unknown]
  - Precancerous cells present [Recovered/Resolved]
  - Weight decreased [Unknown]
  - Nausea [Unknown]
  - Small intestinal obstruction [Recovered/Resolved]

NARRATIVE: CASE EVENT DATE: 20140726
